FAERS Safety Report 8396691-3 (Version None)
Quarter: 2012Q2

REPORT INFORMATION
  Report Type: 
  Country: None (occurrence: None)
  Receive Date: 20120530
  Receipt Date: 20120523
  Transmission Date: 20120825
  Serious: Yes (Hospitalization, Other)
  Sender: FDA-Public Use
  Company Number: TW-ABBOTT-12P-153-0939230-00

PATIENT
  Sex: Male
  Weight: 75 kg

DRUGS (1)
  1. HUMIRA [Suspect]
     Indication: RHEUMATOID ARTHRITIS
     Route: 058
     Dates: start: 20110615, end: 20111024

REACTIONS (11)
  - GASTROOESOPHAGEAL REFLUX DISEASE [None]
  - TUBERCULOSIS GASTROINTESTINAL [None]
  - GASTRITIS [None]
  - METASTATIC NEOPLASM [None]
  - RECTAL HAEMORRHAGE [None]
  - RENAL CYST [None]
  - DUODENAL NEOPLASM [None]
  - HEPATIC CYST [None]
  - NEPHROLITHIASIS [None]
  - RETROPERITONEAL LYMPHADENOPATHY [None]
  - HAEMORRHOIDS [None]
